FAERS Safety Report 10306621 (Version 1)
Quarter: 2014Q3

REPORT INFORMATION
  Report Type: Spontaneous
  Country: US (occurrence: US)
  Receive Date: 20140715
  Receipt Date: 20140715
  Transmission Date: 20150326
  Serious: No
  Sender: FDA-Public Use
  Company Number: US-PFIZER INC-2014195925

PATIENT
  Age: 93 Year
  Sex: Female
  Weight: 48 kg

DRUGS (1)
  1. SPIRONOLACTONE. [Suspect]
     Active Substance: SPIRONOLACTONE
     Dosage: 50 MG, UNK
     Dates: end: 20140712

REACTIONS (8)
  - Activities of daily living impaired [Unknown]
  - Memory impairment [Unknown]
  - Fatigue [Unknown]
  - Balance disorder [Unknown]
  - Gait disturbance [Unknown]
  - Visual impairment [Unknown]
  - Thinking abnormal [Unknown]
  - Hearing impaired [Unknown]
